FAERS Safety Report 12099246 (Version 1)
Quarter: 2016Q1

REPORT INFORMATION
  Report Type: Spontaneous
  Country: US (occurrence: US)
  Receive Date: 20160222
  Receipt Date: 20160222
  Transmission Date: 20160526
  Serious: No
  Sender: FDA-Public Use
  Company Number: US-PFIZER INC-2016091924

PATIENT
  Age: 69 Year
  Sex: Male
  Weight: 86.18 kg

DRUGS (5)
  1. ADVIL PM [Suspect]
     Active Substance: DIPHENHYDRAMINE CITRATE\IBUPROFEN
     Indication: PAIN
     Dosage: 1 CAPLET, DAILY (ONE AT BEDTIME)
     Route: 048
     Dates: start: 2015, end: 2015
  2. ADVIL PM [Suspect]
     Active Substance: DIPHENHYDRAMINE CITRATE\IBUPROFEN
     Indication: SLEEP DISORDER
     Dosage: 2 CAPLET, DAILY
     Route: 048
     Dates: start: 2015
  3. ALPRAZOLAM. [Suspect]
     Active Substance: ALPRAZOLAM
     Indication: SLEEP DISORDER
     Dosage: 2 MG, 1X/DAY (1 MG, TWO TABLETS, ONCE AT BEDTIME)
     Route: 048
     Dates: start: 2010
  4. CARTIA XT [Concomitant]
     Active Substance: DILTIAZEM HYDROCHLORIDE
     Indication: HEART RATE IRREGULAR
     Dosage: 120 MG, 1X/DAY (ONCE A DAY IN THE MORNING)
  5. BABY ASPIRIN [Concomitant]
     Active Substance: ASPIRIN
     Dosage: UNK, DAILY (IN THE MORNING)

REACTIONS (6)
  - Feeling abnormal [Not Recovered/Not Resolved]
  - Product use issue [Not Recovered/Not Resolved]
  - Product label issue [Unknown]
  - Intentional product use issue [Recovered/Resolved]
  - Somnolence [Unknown]
  - Drug effect incomplete [Unknown]

NARRATIVE: CASE EVENT DATE: 2015
